FAERS Safety Report 13196255 (Version 1)
Quarter: 2017Q1

REPORT INFORMATION
  Report Type: Spontaneous
  Country: US (occurrence: US)
  Receive Date: 20170208
  Receipt Date: 20170208
  Transmission Date: 20170428
  Serious: Yes (Hospitalization)
  Sender: FDA-Public Use
  Company Number: US-MALLINCKRODT-T201700355

PATIENT
  Age: 62 Year
  Sex: Female

DRUGS (7)
  1. GABLOFEN [Suspect]
     Active Substance: BACLOFEN
     Indication: SPINAL CORD DISORDER
     Dosage: 1080 ?G, QD
     Dates: start: 20170123
  2. GABLOFEN [Suspect]
     Active Substance: BACLOFEN
     Indication: MUSCLE SPASTICITY
     Dosage: 1286 ?G, QD
     Dates: end: 20161219
  3. CELEBREX [Concomitant]
     Active Substance: CELECOXIB
  4. NEURONTIN [Concomitant]
     Active Substance: GABAPENTIN
  5. CELEXA [Concomitant]
     Active Substance: CITALOPRAM HYDROBROMIDE
  6. METHAMPHETAMINE [Concomitant]
     Active Substance: METHAMPHETAMINE
  7. GABLOFEN [Suspect]
     Active Substance: BACLOFEN
     Indication: SPINAL CORD INJURY
     Dosage: 1199.9 ?G, QD
     Route: 037
     Dates: start: 20161219, end: 20170123

REACTIONS (4)
  - Cerebrovascular accident [Unknown]
  - Sedation [Unknown]
  - Apathy [Recovering/Resolving]
  - Cognitive disorder [Unknown]

NARRATIVE: CASE EVENT DATE: 20161219
